FAERS Safety Report 16465200 (Version 1)
Quarter: 2019Q2

REPORT INFORMATION
  Report Type: Spontaneous
  Country: PH (occurrence: PH)
  Receive Date: 20190621
  Receipt Date: 20190621
  Transmission Date: 20190711
  Serious: Yes (Hospitalization)
  Sender: FDA-Public Use
  Company Number: PH-PFIZER INC-2019259244

PATIENT
  Age: 9 Decade
  Sex: Male

DRUGS (2)
  1. WARFARIN [Interacting]
     Active Substance: WARFARIN
  2. CELEBREX [Suspect]
     Active Substance: CELECOXIB
     Indication: ARTHRITIS
     Dosage: 200 MG, 2X/DAY
     Dates: start: 20190610

REACTIONS (2)
  - Drug interaction [Unknown]
  - Drug level increased [Unknown]
